FAERS Safety Report 6992532 (Version 2)
Quarter: 2013Q3

REPORT INFORMATION
  Report Type: Report from Study
  Country: IT (occurrence: IT)
  Receive Date: 20090512
  Receipt Date: 20130923
  Transmission Date: 20140515
  Serious: Yes (Death, Other)
  Sender: FDA-Public Use
  Company Number: IT-ALEXION-A200900148

PATIENT
  Age: 11 Year
  Sex: Female

DRUGS (6)
  1. SOLIRIS [Suspect]
     Indication: PROPHYLAXIS AGAINST TRANSPLANT REJECTION
     Dosage: 600 MG, SINGLE
     Route: 042
     Dates: start: 20090129, end: 20090129
  2. SOLIRIS [Suspect]
     Indication: OFF LABEL USE
     Dosage: 600 MG, SINGLE
     Route: 042
     Dates: start: 20090205, end: 20090205
  3. ANTIBIOTICS [Concomitant]
     Indication: PROPHYLAXIS
  4. ANTIVIRALS NOS [Concomitant]
  5. ANTIFUNGALS [Concomitant]
     Indication: PROPHYLAXIS
  6. IMMUNOSUPPRESSANTS [Concomitant]

REACTIONS (3)
  - Respiratory failure [Fatal]
  - Cerebral aspergillosis [Unknown]
  - Enterococcal sepsis [Unknown]
